FAERS Safety Report 7282052-7 (Version None)
Quarter: 2011Q1

REPORT INFORMATION
  Report Type: 
  Country: None (occurrence: None)
  Receive Date: 20110208
  Receipt Date: 20110203
  Transmission Date: 20110831
  Serious: Yes (Hospitalization, Other)
  Sender: FDA-Public Use
  Company Number: US-AMGEN-USASP2010008188

PATIENT
  Age: 77 Year
  Sex: Female
  Weight: 48 kg

DRUGS (7)
  1. FOSAMAX [Concomitant]
     Dosage: 70 MG, UNK
  2. ENALAPRIL MALEATE [Concomitant]
     Dosage: 1`2.5 MG, QD
  3. LOPRESOR                           /00376902/ [Concomitant]
     Dosage: 12.5 MG, QD
  4. IMMUNOGLOBULINS [Concomitant]
     Indication: IDIOPATHIC THROMBOCYTOPENIC PURPURA
     Dosage: UNK
     Dates: start: 20081126, end: 20101027
  5. NPLATE [Suspect]
     Indication: IDIOPATHIC THROMBOCYTOPENIC PURPURA
     Dosage: 6 A?G/KG, UNK
     Dates: start: 20081126, end: 20101027
  6. RITUXIMAB [Concomitant]
  7. CORTICOSTEROIDS [Concomitant]
     Indication: IDIOPATHIC THROMBOCYTOPENIC PURPURA
     Dosage: UNK
     Dates: start: 19830101

REACTIONS (3)
  - THERAPEUTIC RESPONSE DECREASED [None]
  - BIOPSY BONE MARROW ABNORMAL [None]
  - THROMBOCYTOPENIA [None]
